FAERS Safety Report 9159819 (Version 2)
Quarter: 2013Q1

REPORT INFORMATION
  Report Type: Spontaneous
  Country: US (occurrence: None)
  Receive Date: 20130220
  Receipt Date: 20130314
  Transmission Date: 20140127
  Serious: Yes (Hospitalization)
  Sender: FDA-Public Use
  Company Number: JPI-P-027196

PATIENT
  Age: 51 Year
  Sex: Male

DRUGS (2)
  1. XYREM (500 MG/ML SOLUTION)(SODIUM OXYBATE) [Suspect]
     Indication: CATAPLEXY
     Dosage: TWO DOSES OF 2.25 GM NIGHTLY (4.5 GM TOTAL).
     Route: 048
     Dates: start: 20121003, end: 2012
  2. VENLAFAXINE (EFFEXOR) [Suspect]
     Indication: PRODUCT USED FOR UNKNOWN INDICATION

REACTIONS (7)
  - Nausea [None]
  - Initial insomnia [None]
  - Cataplexy [None]
  - Dystonia [None]
  - Chills [None]
  - Joint stiffness [None]
  - Drug ineffective [None]
